FAERS Safety Report 8358228-4 (Version None)
Quarter: 2012Q2

REPORT INFORMATION
  Report Type: 
  Country: None (occurrence: None)
  Receive Date: 20120514
  Receipt Date: 20120508
  Transmission Date: 20120825
  Serious: Yes (Other)
  Sender: FDA-Public Use
  Company Number: JP-GLAXOSMITHKLINE-B0798662A

PATIENT
  Sex: Male
  Weight: 90 kg

DRUGS (3)
  1. LAMICTAL [Suspect]
     Indication: EPILEPSY
     Route: 048
     Dates: start: 20090101
  2. LAMICTAL [Suspect]
     Dosage: 300MG PER DAY
     Route: 048
     Dates: start: 20120101
  3. DEPAKENE [Concomitant]
     Indication: EPILEPSY
     Dosage: 1200MG PER DAY
     Route: 048

REACTIONS (1)
  - HYPOGLYCAEMIA [None]
